FAERS Safety Report 6019236-1 (Version None)
Quarter: 2008Q4

REPORT INFORMATION
  Report Type: 
  Country: None (occurrence: None)
  Receive Date: 20081224
  Receipt Date: 20081202
  Transmission Date: 20090506
  Serious: Yes (Hospitalization)
  Sender: FDA-Public Use
  Company Number: DE-PFIZER INC-2008084364

PATIENT

DRUGS (4)
  1. AROMASIN [Suspect]
     Indication: BREAST CANCER
     Dosage: UNK
     Route: 048
     Dates: start: 20040101
  2. IBUPROFEN TABLETS [Suspect]
     Dosage: UNK
  3. CELEBREX [Suspect]
     Indication: ARTHRITIS
     Dosage: UNK
  4. DICLOFENAC SODIUM [Suspect]
     Dosage: UNK

REACTIONS (2)
  - GRANULOMATOUS LIVER DISEASE [None]
  - HEPATIC STEATOSIS [None]
